FAERS Safety Report 9748441 (Version 1)
Quarter: 2013Q4

REPORT INFORMATION
  Report Type: Spontaneous
  Country: GB (occurrence: GB)
  Receive Date: 20131212
  Receipt Date: 20131212
  Transmission Date: 20140711
  Serious: Yes (Other)
  Sender: FDA-Public Use
  Company Number: GB-ASTRAZENECA-2013SE89044

PATIENT
  Age: 79 Year
  Sex: Female
  Weight: 75.5 kg

DRUGS (7)
  1. ANASTROZOLE [Suspect]
     Route: 048
     Dates: start: 20130816
  2. BENDROFLUMETHIAZIDE [Concomitant]
     Dates: start: 20130812
  3. DIPROBASE [Concomitant]
     Dates: start: 20130906, end: 20131004
  4. INFLUENZA VIRUS [Concomitant]
     Dates: start: 20131005, end: 20131006
  5. RAMIPRIL [Concomitant]
     Dates: start: 20130812
  6. SIMVASTATIN [Concomitant]
     Dates: start: 20130812
  7. ZOSTAVAX [Concomitant]
     Dates: start: 20131005, end: 20131006

REACTIONS (2)
  - Blister [Recovering/Resolving]
  - Skin lesion [Recovering/Resolving]
